FAERS Safety Report 5385985-1 (Version None)
Quarter: 2007Q3

REPORT INFORMATION
  Report Type: 
  Country: None (occurrence: None)
  Receive Date: 20070709
  Receipt Date: 20070629
  Transmission Date: 20080115
  Serious: Yes (Other)
  Sender: FDA-Public Use
  Company Number: 2007SP013104

PATIENT
  Age: 60 Year
  Sex: Female
  Weight: 64 kg

DRUGS (5)
  1. VIRAFERONPEG [Suspect]
     Indication: HEPATITIS C
     Dosage: 100 MCG; ; SC
     Route: 058
     Dates: start: 20070608, end: 20070608
  2. REBETOL [Suspect]
     Indication: HEPATITIS C
     Dosage: 800 MG; ; PO
     Route: 048
     Dates: start: 20070608, end: 20070611
  3. LEVOTHYROXINE SODIUM [Concomitant]
  4. HYPERIUM [Concomitant]
  5. CELECTOL [Concomitant]

REACTIONS (2)
  - DERMATITIS EXFOLIATIVE [None]
  - HYPERSENSITIVITY [None]
